FAERS Safety Report 15383367 (Version 1)
Quarter: 2018Q3

REPORT INFORMATION
  Report Type: Spontaneous
  Country: IT (occurrence: IT)
  Receive Date: 20180913
  Receipt Date: 20180913
  Transmission Date: 20181010
  Serious: Yes (Hospitalization)
  Sender: FDA-Public Use
  Company Number: PHHY2018IT096565

PATIENT
  Sex: Female
  Weight: 10 kg

DRUGS (1)
  1. BISOPROLOL FUMARATE. [Suspect]
     Active Substance: BISOPROLOL FUMARATE
     Indication: ACCIDENTAL EXPOSURE TO PRODUCT
     Dosage: 5 MG, QD
     Route: 048
     Dates: start: 20180427, end: 20180427

REACTIONS (2)
  - Accidental exposure to product [Recovering/Resolving]
  - Sinus tachycardia [Recovering/Resolving]

NARRATIVE: CASE EVENT DATE: 20180427
